FAERS Safety Report 8276631-8 (Version None)
Quarter: 2012Q2

REPORT INFORMATION
  Report Type: 
  Country: None (occurrence: None)
  Receive Date: 20120412
  Receipt Date: 20120405
  Transmission Date: 20120825
  Serious: Yes (Other)
  Sender: FDA-Public Use
  Company Number: PHHY2012MX029907

PATIENT
  Sex: Female

DRUGS (6)
  1. ASPIRIN [Concomitant]
     Indication: CARDIAC DISORDER
     Dosage: UNK, DAILY
  2. ANASIKE [Concomitant]
     Indication: SLEEP DISORDER
  3. MADOPAR [Concomitant]
     Indication: DYSKINESIA
  4. KEPPRA [Concomitant]
  5. EXELON [Suspect]
     Indication: DEMENTIA ALZHEIMER'S TYPE
     Dosage: 9.5 MG/24 HS
     Route: 062
     Dates: start: 20100509
  6. CLONAZEPAM [Concomitant]
     Indication: SLEEP DISORDER

REACTIONS (6)
  - MUSCLE RIGIDITY [None]
  - IMMOBILE [None]
  - SPEECH DISORDER [None]
  - TREMOR [None]
  - CONDITION AGGRAVATED [None]
  - MALAISE [None]
